FAERS Safety Report 25335166 (Version 1)
Quarter: 2025Q2

REPORT INFORMATION
  Report Type: Spontaneous
  Country: US (occurrence: US)
  Receive Date: 20250520
  Receipt Date: 20250520
  Transmission Date: 20250716
  Serious: No
  Sender: AJANTA PHARMA USA INC
  Company Number: US-AJANTA-2025AJA00061

PATIENT
  Age: 57 Year
  Sex: Female
  Weight: 185 kg

DRUGS (11)
  1. DULOXETINE [Suspect]
     Active Substance: DULOXETINE
     Indication: Depression
     Route: 048
     Dates: start: 20250407
  2. DULOXETINE [Suspect]
     Active Substance: DULOXETINE
     Indication: Anxiety
  3. DULOXETINE [Suspect]
     Active Substance: DULOXETINE
     Indication: Fibromyalgia
  4. BENZONATATE [Concomitant]
     Active Substance: BENZONATATE
  5. LOPERAMIDE [Concomitant]
     Active Substance: LOPERAMIDE
  6. OMEPRAZOLE [Concomitant]
     Active Substance: OMEPRAZOLE
  7. CYCLOBENZAPRINE [Concomitant]
     Active Substance: CYCLOBENZAPRINE
  8. BUPROPION [Concomitant]
     Active Substance: BUPROPION
  9. OXYBUTYNIN [Concomitant]
     Active Substance: OXYBUTYNIN
  10. PREDNISONE [Concomitant]
     Active Substance: PREDNISONE
  11. GABAPENTIN [Concomitant]
     Active Substance: GABAPENTIN

REACTIONS (3)
  - Wound [Unknown]
  - Pruritus allergic [Unknown]
  - Product substitution issue [Unknown]

NARRATIVE: CASE EVENT DATE: 20250401
